FAERS Safety Report 6526977-6 (Version None)
Quarter: 2009Q4

REPORT INFORMATION
  Report Type: 
  Country: None (occurrence: None)
  Receive Date: 20091222
  Receipt Date: 20090226
  Transmission Date: 20100525
  Serious: No
  Sender: FDA-Public Use
  Company Number: 202027

PATIENT
  Age: 18 Year
  Sex: Male
  Weight: 80.7403 kg

DRUGS (2)
  1. DEMEROL [Suspect]
     Indication: PAIN
     Dosage: 12.5 MG, TWICE, INTRAVENOUS
     Route: 042
     Dates: start: 20090219, end: 20090219
  2. ZYRTEC [Concomitant]

REACTIONS (1)
  - URTICARIA [None]
